FAERS Safety Report 16483794 (Version 2)
Quarter: 2019Q3

REPORT INFORMATION
  Report Type: Spontaneous
  Country: US (occurrence: US)
  Receive Date: 20190627
  Receipt Date: 20190705
  Transmission Date: 20191004
  Serious: No
  Sender: FDA-Public Use
  Company Number: US-PFIZER INC-2019273228

PATIENT
  Age: 64 Year
  Sex: Male

DRUGS (2)
  1. XELJANZ XR [Suspect]
     Active Substance: TOFACITINIB CITRATE
     Dosage: 11 MG, UNK, (X30)
     Dates: start: 20180614
  2. XELJANZ XR [Suspect]
     Active Substance: TOFACITINIB CITRATE
     Dosage: 11 MG, UNK, (X30)
     Dates: start: 20180626

REACTIONS (3)
  - Eczema [Unknown]
  - Skin exfoliation [Unknown]
  - Skin lesion [Unknown]
